FAERS Safety Report 8336432-9 (Version None)
Quarter: 2012Q2

REPORT INFORMATION
  Report Type: 
  Country: None (occurrence: None)
  Receive Date: 20120504
  Receipt Date: 20120502
  Transmission Date: 20120825
  Serious: Yes (Other)
  Sender: FDA-Public Use
  Company Number: PHHO2006US11603

PATIENT
  Sex: Female

DRUGS (5)
  1. GLUCOSAMINE [Concomitant]
  2. GLEEVEC [Suspect]
     Indication: CHRONIC MYELOID LEUKAEMIA
     Dosage: 300 MG, QD
     Route: 048
     Dates: start: 20001003
  3. CALCIUM [Concomitant]
  4. MULTI-VITAMINS [Concomitant]
  5. NAPROXEN (ALEVE) [Suspect]

REACTIONS (6)
  - POLYMORPHIC LIGHT ERUPTION [None]
  - BLISTER [None]
  - ERYTHEMA [None]
  - RASH [None]
  - PERIVASCULAR DERMATITIS [None]
  - PAPULE [None]
